FAERS Safety Report 7628825-X (Version None)
Quarter: 2011Q3

REPORT INFORMATION
  Report Type: 
  Country: None (occurrence: None)
  Receive Date: 20110720
  Receipt Date: 20110720
  Transmission Date: 20111222
  Serious: Yes (Hospitalization)
  Sender: FDA-Public Use
  Company Number: None

PATIENT
  Age: 4 Year
  Sex: Male
  Weight: 19.5047 kg

DRUGS (5)
  1. NSS/HEPARIN FLUSH [Concomitant]
  2. HUBER NEEDLE [Concomitant]
  3. CADD PRISM PUMP [Concomitant]
  4. GAMUNEX [Suspect]
     Indication: NEUROBLASTOMA
     Dosage: 19.5GM, IV, QMO.
     Route: 042
     Dates: start: 20110201, end: 20110701
  5. GAMUNEX [Suspect]
     Indication: NEUROBLASTOMA
     Dosage: 19.5GM, IV, QMO.
     Route: 042
     Dates: start: 20080801

REACTIONS (2)
  - BODY TEMPERATURE INCREASED [None]
  - INFUSION RELATED REACTION [None]
